FAERS Safety Report 11093731 (Version 2)
Quarter: 2015Q2

REPORT INFORMATION
  Report Type: Spontaneous
  Country: PT (occurrence: PT)
  Receive Date: 20150506
  Receipt Date: 20150611
  Transmission Date: 20150821
  Serious: Yes (Other)
  Sender: FDA-Public Use
  Company Number: PT-009507513-1505PRT000723

PATIENT
  Age: 41 Year
  Sex: Female
  Weight: 49 kg

DRUGS (4)
  1. FOSAVANCE [Suspect]
     Active Substance: ALENDRONATE SODIUM\CHOLECALCIFEROL
     Indication: OSTEOPOROSIS
     Dosage: 1 TABLET, QW
     Route: 048
     Dates: start: 20150411
  2. DENSICAL D [Concomitant]
     Indication: OSTEOPOROSIS
     Dosage: 1 CHEWABLE TABLET, QD
     Route: 048
     Dates: start: 20150411
  3. RIVOTRIL [Concomitant]
     Active Substance: CLONAZEPAM
     Indication: DEPRESSION
     Dosage: 0.5 MG, QD
     Route: 048
     Dates: start: 201401
  4. ANGELIQ [Concomitant]
     Active Substance: DROSPIRENONE\ESTRADIOL
     Indication: MENOPAUSE
     Dosage: 1 COATED TABLET, QD
     Route: 048
     Dates: start: 201501

REACTIONS (8)
  - Nausea [Recovered/Resolved]
  - Headache [Recovered/Resolved]
  - Arthralgia [Recovered/Resolved]
  - Myalgia [Recovered/Resolved]
  - Malaise [Recovered/Resolved]
  - Asthenia [Recovered/Resolved]
  - Pain in extremity [Recovered/Resolved]
  - Back pain [Recovered/Resolved]

NARRATIVE: CASE EVENT DATE: 20150411
